FAERS Safety Report 9228013 (Version 1)
Quarter: 2013Q1

REPORT INFORMATION
  Report Type: Spontaneous
  Country: US (occurrence: None)
  Receive Date: 20121023
  Receipt Date: 20121023
  Transmission Date: 20140127
  Serious: Yes (Other)
  Sender: FDA-Public Use
  Company Number: PHEH2012US013755

PATIENT
  Sex: Female

DRUGS (3)
  1. VIVELLE DOT (ESTRADIOL) TRANS-THERAPEUTIC-SYSTEM [Suspect]
     Route: 062
  2. PROGESTERONE (PROGESTERONE) [Concomitant]
  3. CALCIUM (CALCIUM) [Concomitant]

REACTIONS (3)
  - Vaginal haemorrhage [None]
  - Muscle spasms [None]
  - Wrong technique in drug usage process [None]
